FAERS Safety Report 14616269 (Version 3)
Quarter: 2018Q3

REPORT INFORMATION
  Report Type: Spontaneous
  Country: US (occurrence: US)
  Receive Date: 20180309
  Receipt Date: 20180926
  Transmission Date: 20181010
  Serious: No
  Sender: FDA-Public Use
  Company Number: US-PFIZER INC-2018091839

PATIENT
  Age: 8 Year
  Sex: Female

DRUGS (2)
  1. GENOTROPIN MQ [Suspect]
     Active Substance: SOMATROPIN
     Dosage: 0.8 MG, UNK
  2. GENOTROPIN MQ [Suspect]
     Active Substance: SOMATROPIN
     Dosage: 0.8 MG, DAILY
     Dates: start: 201004

REACTIONS (3)
  - Bone density decreased [Unknown]
  - Insulin-like growth factor increased [Recovered/Resolved]
  - Insulin-like growth factor decreased [Unknown]

NARRATIVE: CASE EVENT DATE: 20180328
